FAERS Safety Report 23272320 (Version 1)
Quarter: 2023Q4

REPORT INFORMATION
  Report Type: Spontaneous
  Country: US (occurrence: None)
  Receive Date: 20231206
  Receipt Date: 20231206
  Transmission Date: 20240109
  Serious: Yes (Other)
  Sender: FDA-Public Use
  Company Number: None

PATIENT
  Age: 48 Year
  Sex: Female

DRUGS (1)
  1. VERZENIO [Suspect]
     Active Substance: ABEMACICLIB
     Dosage: FREQUENCY : TWICE A DAY;?
     Route: 048
     Dates: start: 20231127

REACTIONS (10)
  - Nausea [None]
  - Vomiting [None]
  - Decreased appetite [None]
  - Taste disorder [None]
  - Hot flush [None]
  - Insomnia [None]
  - Crying [None]
  - Emotional disorder [None]
  - Constipation [None]
  - Abnormal behaviour [None]

NARRATIVE: CASE EVENT DATE: 20231205
